FAERS Safety Report 24707044 (Version 2)
Quarter: 2024Q4

REPORT INFORMATION
  Report Type: Spontaneous
  Country: US (occurrence: US)
  Receive Date: 20241206
  Receipt Date: 20241220
  Transmission Date: 20250114
  Serious: Yes (Other)
  Sender: CSL BEHRING
  Company Number: US-BEH-2024186680

PATIENT
  Age: 10 Year
  Sex: Male

DRUGS (14)
  1. IDELVION [Suspect]
     Active Substance: COAGULATION FACTOR IX RECOMBINANT HUMAN
     Indication: Factor IX deficiency
     Dosage: 2000 IU, QW (STRENGTH 2000)
     Route: 042
     Dates: start: 201407
  2. IDELVION [Suspect]
     Active Substance: COAGULATION FACTOR IX RECOMBINANT HUMAN
     Indication: Factor IX deficiency
     Dosage: 2000 IU, QW (STRENGTH 2000)
     Route: 042
     Dates: start: 201407
  3. IDELVION [Suspect]
     Active Substance: COAGULATION FACTOR IX RECOMBINANT HUMAN
     Indication: Prophylaxis
     Dosage: 250 IU, QW (STRENGTH 250)
     Route: 042
     Dates: start: 201407
  4. IDELVION [Suspect]
     Active Substance: COAGULATION FACTOR IX RECOMBINANT HUMAN
     Indication: Prophylaxis
     Dosage: 250 IU, QW (STRENGTH 250)
     Route: 042
     Dates: start: 201407
  5. IDELVION [Suspect]
     Active Substance: COAGULATION FACTOR IX RECOMBINANT HUMAN
     Indication: Haemorrhage
     Dosage: 2000 IU, QW (STRENGTH 2000)
     Route: 042
     Dates: start: 20241110
  6. IDELVION [Suspect]
     Active Substance: COAGULATION FACTOR IX RECOMBINANT HUMAN
     Indication: Haemorrhage
     Dosage: 2000 IU, QW (STRENGTH 2000)
     Route: 042
     Dates: start: 20241110
  7. IDELVION [Suspect]
     Active Substance: COAGULATION FACTOR IX RECOMBINANT HUMAN
     Dosage: 250 IU, QW (STRENGTH 250)
     Route: 042
     Dates: start: 20241110
  8. IDELVION [Suspect]
     Active Substance: COAGULATION FACTOR IX RECOMBINANT HUMAN
     Dosage: 250 IU, QW (STRENGTH 250)
     Route: 042
     Dates: start: 20241110
  9. IDELVION [Suspect]
     Active Substance: COAGULATION FACTOR IX RECOMBINANT HUMAN
     Dosage: 2000 IU, PRN (STRENGTH 2000)
     Route: 042
     Dates: start: 201407
  10. IDELVION [Suspect]
     Active Substance: COAGULATION FACTOR IX RECOMBINANT HUMAN
     Dosage: 2000 IU, PRN (STRENGTH 2000)
     Route: 042
     Dates: start: 201407
  11. IDELVION [Suspect]
     Active Substance: COAGULATION FACTOR IX RECOMBINANT HUMAN
     Dosage: 250 IU, PRN (STRENGTH 250)
     Route: 042
     Dates: start: 201407
  12. IDELVION [Suspect]
     Active Substance: COAGULATION FACTOR IX RECOMBINANT HUMAN
     Dosage: 250 IU, PRN (STRENGTH 250)
     Route: 042
     Dates: start: 201407
  13. IDELVION [Suspect]
     Active Substance: COAGULATION FACTOR IX RECOMBINANT HUMAN
     Dosage: 2250 IU, EVERY 7 DAYS AND PRN (STRENGTH: 2000)
     Route: 042
     Dates: start: 201407
  14. IDELVION [Suspect]
     Active Substance: COAGULATION FACTOR IX RECOMBINANT HUMAN
     Dosage: 2250 IU, EVERY 7 DAYS AND PRN (STRENGTH: 2000)
     Route: 042
     Dates: start: 201407

REACTIONS (3)
  - Haemorrhage [Unknown]
  - Haemarthrosis [Unknown]
  - Injection site reaction [Unknown]

NARRATIVE: CASE EVENT DATE: 20241108
